FAERS Safety Report 6072089-8 (Version None)
Quarter: 2009Q1

REPORT INFORMATION
  Report Type: 
  Country: None (occurrence: None)
  Receive Date: 20090210
  Receipt Date: 20090205
  Transmission Date: 20090719
  Serious: Yes (Hospitalization, Other)
  Sender: FDA-Public Use
  Company Number: US-BRISTOL-MYERS SQUIBB COMPANY-14019376

PATIENT
  Age: 62 Year
  Sex: Male

DRUGS (5)
  1. BLINDED: IPILIMUMAB [Suspect]
     Indication: MALIGNANT MELANOMA
     Dosage: THERAPY DATES: 09-OCT-2007 TO 11-DEC-2007,DRUG INTERRUPTED.
     Route: 042
     Dates: start: 20071009, end: 20071211
  2. BLINDED: PLACEBO [Suspect]
     Indication: MALIGNANT MELANOMA
     Dosage: THERAPY DATES: 09-OCT-2007 TO 11-DEC-2007,DRUG INTERRUPTED.
     Route: 042
     Dates: start: 20071009, end: 20071211
  3. DACARBAZINE [Suspect]
     Indication: MALIGNANT MELANOMA
     Route: 042
     Dates: start: 20071009, end: 20071211
  4. BENADRYL [Concomitant]
     Dates: start: 20071112
  5. ONDANSETRON [Concomitant]
     Dates: start: 20071211, end: 20071211

REACTIONS (2)
  - ALANINE AMINOTRANSFERASE INCREASED [None]
  - ASPARTATE AMINOTRANSFERASE INCREASED [None]
